FAERS Safety Report 14457706 (Version 1)
Quarter: 2018Q1

REPORT INFORMATION
  Report Type: Spontaneous
  Country: US (occurrence: US)
  Receive Date: 20180130
  Receipt Date: 20180130
  Transmission Date: 20180509
  Serious: No
  Sender: FDA-Public Use
  Company Number: US-PFIZER INC-2018037427

PATIENT
  Age: 14 Year
  Sex: Male

DRUGS (3)
  1. HYDROCORTISONE. [Concomitant]
     Active Substance: HYDROCORTISONE
     Dosage: STRESS DOSING
  2. GENOTROPIN [Suspect]
     Active Substance: SOMATROPIN
     Dosage: 0.12 MG/KG, WEEKLY
  3. GENOTROPIN [Suspect]
     Active Substance: SOMATROPIN
     Indication: GROWTH HORMONE DEFICIENCY
     Dosage: 1.5 MG, DAILY

REACTIONS (2)
  - Upper respiratory tract infection [Unknown]
  - Drug dose omission [Unknown]
